FAERS Safety Report 7833926-7 (Version None)
Quarter: 2011Q4

REPORT INFORMATION
  Report Type: 
  Country: None (occurrence: None)
  Receive Date: 20111024
  Receipt Date: 20111014
  Transmission Date: 20120403
  Serious: Yes (Other)
  Sender: FDA-Public Use
  Company Number: NL-TEVA-306072ISR

PATIENT
  Sex: Female

DRUGS (1)
  1. MEBENDAZOLE [Suspect]
     Indication: HELMINTHIC INFECTION
     Route: 048
     Dates: start: 20111012, end: 20111012

REACTIONS (1)
  - VOMITING [None]
